FAERS Safety Report 15001694 (Version 2)
Quarter: 2018Q3

REPORT INFORMATION
  Report Type: Spontaneous
  Country: JP (occurrence: JP)
  Receive Date: 20180612
  Receipt Date: 20180705
  Transmission Date: 20181010
  Serious: Yes (Hospitalization, Other)
  Sender: FDA-Public Use
  Company Number: JP-009507513-1806JPN000178J

PATIENT
  Age: 81 Year
  Sex: Male

DRUGS (1)
  1. KEYTRUDA [Suspect]
     Active Substance: PEMBROLIZUMAB
     Indication: TRANSITIONAL CELL CANCER OF THE RENAL PELVIS AND URETER
     Dosage: 200 MG, Q3W
     Route: 041
     Dates: start: 20180416, end: 20180416

REACTIONS (2)
  - Malignant neoplasm progression [Unknown]
  - Encephalitis [Recovered/Resolved]

NARRATIVE: CASE EVENT DATE: 2018
